FAERS Safety Report 9837958 (Version 4)
Quarter: 2014Q3

REPORT INFORMATION
  Report Type: Spontaneous
  Country: US (occurrence: US)
  Receive Date: 20140123
  Receipt Date: 20140717
  Transmission Date: 20150326
  Serious: Yes (Other)
  Sender: FDA-Public Use
  Company Number: US-BAYER-2014-010351

PATIENT
  Age: 27 Year
  Sex: Female
  Weight: 77.98 kg

DRUGS (5)
  1. MIRENA [Suspect]
     Active Substance: LEVONORGESTREL
     Indication: CONTRACEPTION
     Dosage: 20 MCG/24HR, CONT
     Route: 015
     Dates: start: 20110721, end: 20120628
  2. BUSPAR [Concomitant]
     Active Substance: BUSPIRONE HYDROCHLORIDE
     Dosage: 7.5 MG, UNK
     Route: 048
  3. ATIVAN [Concomitant]
     Active Substance: LORAZEPAM
     Indication: ANXIETY
     Dosage: 0.5 MG, UNK
     Route: 048
     Dates: start: 2008
  4. MIRENA [Suspect]
     Active Substance: LEVONORGESTREL
     Indication: CONTRACEPTION
     Dosage: 20 MCG/24HR, CONT
     Route: 015
     Dates: start: 200807, end: 20100727
  5. REMERON [Concomitant]
     Active Substance: MIRTAZAPINE
     Indication: DEPRESSION
     Dosage: 45 MG, UNK
     Route: 048
     Dates: start: 2008

REACTIONS (11)
  - Device difficult to use [None]
  - Medical device discomfort [None]
  - Genital haemorrhage [None]
  - Injury [None]
  - Menorrhagia [None]
  - Abdominal pain [None]
  - Salpingectomy [None]
  - Uterine perforation [None]
  - Procedural pain [None]
  - Emotional distress [None]
  - Device breakage [None]

NARRATIVE: CASE EVENT DATE: 201206
